FAERS Safety Report 17395300 (Version 1)
Quarter: 2020Q1

REPORT INFORMATION
  Report Type: Spontaneous
  Country: DE (occurrence: DE)
  Receive Date: 20200210
  Receipt Date: 20200210
  Transmission Date: 20200409
  Serious: Yes (Other)
  Sender: FDA-Public Use
  Company Number: DE-HBP-2019DE020207

PATIENT
  Age: 56 Year
  Sex: Female
  Weight: 96 kg

DRUGS (1)
  1. LEDAGA [Suspect]
     Active Substance: MECHLORETHAMINE HYDROCHLORIDE
     Indication: CUTANEOUS T-CELL LYMPHOMA STAGE II
     Dosage: UNK, UNKNOWN
     Route: 061
     Dates: start: 20190915, end: 20191010

REACTIONS (3)
  - Post inflammatory pigmentation change [Unknown]
  - Necrosis [Recovered/Resolved]
  - Application site inflammation [Recovered/Resolved]

NARRATIVE: CASE EVENT DATE: 20190922
